FAERS Safety Report 8514527-4 (Version None)
Quarter: 2012Q3

REPORT INFORMATION
  Report Type: 
  Country: None (occurrence: None)
  Receive Date: 20120717
  Receipt Date: 20120705
  Transmission Date: 20120928
  Serious: Yes (Hospitalization)
  Sender: FDA-Public Use
  Company Number: CH-SANOFI-AVENTIS-2012SA047985

PATIENT
  Age: 67 Year
  Sex: Female

DRUGS (7)
  1. FLUCONAZOLE [Interacting]
     Route: 048
  2. BACTRIM [Concomitant]
     Route: 048
  3. MINIRIN [Interacting]
     Route: 050
  4. IMOVANE [Concomitant]
     Route: 048
  5. NEUPOGEN [Concomitant]
     Dosage: DOSE: 30 MIU
     Route: 058
  6. DOCETAXEL [Suspect]
     Indication: BREAST CANCER
     Route: 040
     Dates: start: 20120614, end: 20120614
  7. PASPERTIN [Concomitant]
     Route: 040

REACTIONS (3)
  - GRAND MAL CONVULSION [None]
  - HYPONATRAEMIA [None]
  - DRUG INTERACTION [None]
